FAERS Safety Report 7802493-6 (Version None)
Quarter: 2011Q4

REPORT INFORMATION
  Report Type: 
  Country: None (occurrence: None)
  Receive Date: 20111007
  Receipt Date: 20110926
  Transmission Date: 20120403
  Serious: Yes (Hospitalization)
  Sender: FDA-Public Use
  Company Number: NL-GLAXOSMITHKLINE-B0751840A

PATIENT
  Sex: Male

DRUGS (7)
  1. ASCAL [Concomitant]
     Route: 065
     Dates: start: 20060101
  2. MALARONE [Suspect]
     Indication: MALARIA PROPHYLAXIS
     Route: 048
     Dates: start: 20110831, end: 20110907
  3. SIMVASTATIN [Concomitant]
     Dates: start: 20060101
  4. OMEPRAZOLE [Concomitant]
     Indication: PRODUCT USED FOR UNKNOWN INDICATION
     Dosage: 20MG PER DAY
     Route: 065
     Dates: start: 20070101
  5. LISINOPRIL [Concomitant]
     Dosage: 2.5MG PER DAY
     Route: 048
  6. CITALOPRAM HYDROBROMIDE [Concomitant]
     Indication: PRODUCT USED FOR UNKNOWN INDICATION
     Dosage: 40MG PER DAY
     Route: 048
     Dates: start: 20100101
  7. HYDROCHLOROTHIAZIDE [Concomitant]
     Route: 048

REACTIONS (1)
  - CHOLECYSTITIS [None]
